FAERS Safety Report 18244070 (Version 2)
Quarter: 2020Q3

REPORT INFORMATION
  Report Type: Spontaneous
  Country: PT (occurrence: PT)
  Receive Date: 20200908
  Receipt Date: 20200912
  Transmission Date: 20201103
  Serious: Yes (Other)
  Sender: FDA-Public Use
  Company Number: PT-UCBSA-2020035498

PATIENT
  Age: 74 Year
  Sex: Male

DRUGS (5)
  1. NEUPRO [Suspect]
     Active Substance: ROTIGOTINE
     Indication: ON AND OFF PHENOMENON
     Dosage: UNKNOWN
  2. RIVASTIGMINA [RIVASTIGMINE] [Suspect]
     Active Substance: RIVASTIGMINE
     Indication: PRODUCT USED FOR UNKNOWN INDICATION
     Dosage: UNKNOWN
  3. XADAGO [Suspect]
     Active Substance: SAFINAMIDE MESYLATE
     Indication: ON AND OFF PHENOMENON
     Dosage: UNKNOWN
  4. ONGENTYS [Suspect]
     Active Substance: OPICAPONE
     Indication: ON AND OFF PHENOMENON
     Dosage: UNKNOWN
  5. SINEMET [Suspect]
     Active Substance: CARBIDOPA\LEVODOPA
     Indication: ON AND OFF PHENOMENON
     Dosage: LEVODOPA DOSE: 800 (NO UNITS PROVIDED), UNKNOWN

REACTIONS (14)
  - Dysphonia [Unknown]
  - Delusion [Unknown]
  - Reduced facial expression [Unknown]
  - Tremor [Unknown]
  - Constipation [Unknown]
  - Anxiety [Unknown]
  - Gait disturbance [Unknown]
  - Product use issue [Unknown]
  - Therapeutic response shortened [Unknown]
  - Hallucination [Unknown]
  - Freezing phenomenon [Unknown]
  - Dementia [Unknown]
  - Anosmia [Unknown]
  - Bradykinesia [Unknown]
